FAERS Safety Report 19315783 (Version 2)
Quarter: 2021Q2

REPORT INFORMATION
  Report Type: Spontaneous
  Country: IR (occurrence: IR)
  Receive Date: 20210527
  Receipt Date: 20210603
  Transmission Date: 20210717
  Serious: Yes (Other)
  Sender: FDA-Public Use
  Company Number: IR-PFIZER INC-2021600501

PATIENT
  Age: 42 Year
  Sex: Male

DRUGS (11)
  1. VANCOMYCIN [Concomitant]
     Active Substance: VANCOMYCIN
     Dosage: 500 MG, DAILY
     Route: 042
     Dates: start: 202003
  2. LOPINAVIR + RITONAVIR [Concomitant]
     Active Substance: LOPINAVIR\RITONAVIR
     Indication: COVID-19
     Dosage: 2 DF, 2X/DAY
     Dates: start: 202003
  3. NOREPINEPHRINE. [Concomitant]
     Active Substance: NOREPINEPHRINE
     Indication: HYPOTENSION
     Dosage: UNK (8?10 MCG/MIN, INITIAL DOSE:)
     Route: 042
     Dates: start: 202003
  4. NOREPINEPHRINE. [Concomitant]
     Active Substance: NOREPINEPHRINE
     Dosage: UNK (2?4 MCG/MIN, MAINTENANCE DOSE)
  5. METHYLPREDNISOLONE SODIUM SUCCINATE. [Suspect]
     Active Substance: METHYLPREDNISOLONE SODIUM SUCCINATE
     Dosage: 250 MG, DAILY (ON DAY 2 AND 3)
     Dates: start: 20200327, end: 20200328
  6. TOCILIZUMAB. [Concomitant]
     Active Substance: TOCILIZUMAB
     Indication: COVID-19 PNEUMONIA
     Dosage: 162 MG
     Route: 058
     Dates: start: 2020
  7. PIRFENIDONE. [Concomitant]
     Active Substance: PIRFENIDONE
     Indication: COVID-19
     Dosage: 200 MG, DAILY
     Route: 048
     Dates: start: 202004
  8. METHYLPREDNISOLONE SODIUM SUCCINATE. [Suspect]
     Active Substance: METHYLPREDNISOLONE SODIUM SUCCINATE
     Dosage: 100 MG, DAILY (FROM DAY 4 FOR THE FOLLOWING 10 DAYS)
     Dates: start: 20200329
  9. VANCOMYCIN [Concomitant]
     Active Substance: VANCOMYCIN
     Indication: COVID-19
     Dosage: 1 G ON DAY 1
     Route: 042
     Dates: start: 202003
  10. MEROPENEM. [Concomitant]
     Active Substance: MEROPENEM
     Indication: COVID-19
     Dosage: 500 MG, 3X/DAY
     Route: 042
  11. METHYLPREDNISOLONE SODIUM SUCCINATE. [Suspect]
     Active Substance: METHYLPREDNISOLONE SODIUM SUCCINATE
     Indication: COVID-19
     Dosage: 500 MG, DAILY ON DAY 1
     Dates: start: 20200326, end: 20200326

REACTIONS (2)
  - Blood glucose increased [Unknown]
  - Off label use [Unknown]

NARRATIVE: CASE EVENT DATE: 202003
